FAERS Safety Report 8866776 (Version 1)
Quarter: 2012Q4

REPORT INFORMATION
  Report Type: 
  Country: US (occurrence: US)
  Receive Date: 20121025
  Receipt Date: 20121025
  Transmission Date: 20130627
  Serious: No
  Sender: FDA-Public Use
  Company Number: US-AMGEN-USASP2012013334

PATIENT
  Sex: Female
  Weight: 100.68 kg

DRUGS (10)
  1. ENBREL [Suspect]
     Indication: PRODUCT USED FOR UNKNOWN INDICATION
     Dosage: 50 mg, qwk
     Route: 058
  2. HUMALOG [Concomitant]
  3. METHOTREXATE [Concomitant]
     Dosage: 2.5 mg, UNK
  4. LIPITOR [Concomitant]
     Dosage: 10 mg, UNK
  5. METFORMIN [Concomitant]
     Dosage: 850 mg, UNK
  6. VITAMIN D /00107901/ [Concomitant]
     Dosage: 1000 IU, UNK
  7. ACTOS [Concomitant]
     Dosage: 15 mg, UNK
  8. FOLIC ACID [Concomitant]
  9. MULTI-VIT [Concomitant]
  10. ALTACE [Concomitant]
     Dosage: 1.25 mg, UNK

REACTIONS (1)
  - Upper respiratory tract infection [Unknown]
